FAERS Safety Report 7605832-4 (Version None)
Quarter: 2011Q3

REPORT INFORMATION
  Report Type: 
  Country: None (occurrence: None)
  Receive Date: 20110712
  Receipt Date: 20110712
  Transmission Date: 20111222
  Serious: Yes (Death, Life-Threatening)
  Sender: FDA-Public Use
  Company Number: None

PATIENT
  Age: 32 Year
  Sex: Male
  Weight: 170.0989 kg

DRUGS (1)
  1. PROZAC [Suspect]

REACTIONS (3)
  - COMPLETED SUICIDE [None]
  - MARITAL PROBLEM [None]
  - GUN SHOT WOUND [None]
